FAERS Safety Report 6793325 (Version 4)
Quarter: 2012Q4

REPORT INFORMATION
  Report Type: 
  Country: CA (occurrence: CA)
  Receive Date: 20081022
  Receipt Date: 20121106
  Transmission Date: 20130627
  Serious: Yes (Other)
  Sender: FDA-Public Use
  Company Number: PHHY2008CA24891

PATIENT
  Sex: Male

DRUGS (2)
  1. SANDOSTATIN LAR [Suspect]
     Indication: NEUROENDOCRINE CARCINOMA
     Dosage: 30 mg, every 4 weeks
     Route: 030
     Dates: start: 20080125
  2. OCTREOTIDE [Concomitant]
     Route: 058

REACTIONS (2)
  - Liver disorder [Unknown]
  - Flatulence [Unknown]
